FAERS Safety Report 15766648 (Version 1)
Quarter: 2018Q4

REPORT INFORMATION
  Report Type: Spontaneous
  Country: DE (occurrence: DE)
  Receive Date: 20181227
  Receipt Date: 20181227
  Transmission Date: 20190205
  Serious: Yes (Other)
  Sender: FDA-Public Use
  Company Number: DE-PFIZER INC-2018523997

PATIENT
  Age: 33 Year
  Sex: Female

DRUGS (4)
  1. PREGABALIN. [Suspect]
     Active Substance: PREGABALIN
     Indication: ANXIETY
     Dosage: 3000 MG, QD ( UP TO 6 DAILY INTAKES WITH VARIOUS DOSES RANGING FROM 25 TO 300 MG)
     Route: 048
  2. LORAZEPAM. [Suspect]
     Active Substance: LORAZEPAM
     Dosage: UNK (REDUCE THE DAILY LORAZEPAM DOSE AND FINALLY SHE COMPLETELY ABANDONED)
     Route: 065
  3. PREGABALIN. [Suspect]
     Active Substance: PREGABALIN
     Dosage: 25 MG, PRN
     Route: 048
  4. LORAZEPAM. [Suspect]
     Active Substance: LORAZEPAM
     Dosage: UNK (TAKING BETWEEN 3 AND 6 MG PER DAY)
     Route: 065

REACTIONS (5)
  - Drug dependence [Unknown]
  - Sedation [Unknown]
  - Intentional overdose [Unknown]
  - Euphoric mood [Unknown]
  - Drug abuse [Unknown]
